FAERS Safety Report 7515626-6 (Version None)
Quarter: 2011Q2

REPORT INFORMATION
  Report Type: 
  Country: None (occurrence: None)
  Receive Date: 20110601
  Receipt Date: 20100723
  Transmission Date: 20111010
  Serious: Yes (Hospitalization, Other)
  Sender: FDA-Public Use
  Company Number: US-PFIZER INC-2010043725

PATIENT
  Sex: Male

DRUGS (1)
  1. CHANTIX [Suspect]
     Indication: SMOKING CESSATION THERAPY
     Dosage: UNK
     Route: 048
     Dates: start: 20080401, end: 20080601

REACTIONS (5)
  - SUICIDAL IDEATION [None]
  - DEPRESSION [None]
  - LOSS OF CONSCIOUSNESS [None]
  - AGGRESSION [None]
  - ANXIETY [None]
